FAERS Safety Report 9701765 (Version 1)
Quarter: 2013Q4

REPORT INFORMATION
  Report Type: Spontaneous
  Country: FR (occurrence: FR)
  Receive Date: 20131121
  Receipt Date: 20131121
  Transmission Date: 20140711
  Serious: Yes (Hospitalization)
  Sender: FDA-Public Use
  Company Number: FR-TAKEDA-2013TUS002402

PATIENT
  Sex: 0

DRUGS (16)
  1. ADENURIC [Suspect]
     Indication: GOUT
     Dosage: 80 MG, QD
     Route: 048
     Dates: start: 20130708, end: 20130708
  2. ADENURIC [Suspect]
     Dosage: 80 MG, QD
     Route: 048
     Dates: start: 20130715, end: 20130715
  3. PREVISCAN                          /00789001/ [Concomitant]
     Indication: PRODUCT USED FOR UNKNOWN INDICATION
     Route: 048
  4. PROCORALAN [Concomitant]
     Indication: PRODUCT USED FOR UNKNOWN INDICATION
     Route: 048
  5. KARDEGIC [Concomitant]
     Indication: PRODUCT USED FOR UNKNOWN INDICATION
     Route: 048
  6. RAMIPRIL [Concomitant]
     Indication: PRODUCT USED FOR UNKNOWN INDICATION
  7. NEBIVOLOL [Concomitant]
     Indication: PRODUCT USED FOR UNKNOWN INDICATION
  8. DIFFU K [Concomitant]
     Indication: PRODUCT USED FOR UNKNOWN INDICATION
  9. TAHOR [Concomitant]
     Indication: PRODUCT USED FOR UNKNOWN INDICATION
  10. DISCOTRINE [Concomitant]
     Indication: PRODUCT USED FOR UNKNOWN INDICATION
     Dosage: 5 MG,1 IN 24 HR
     Route: 062
  11. NOVOMIX [Concomitant]
     Indication: PRODUCT USED FOR UNKNOWN INDICATION
  12. LEVOTHYROX [Concomitant]
     Indication: PRODUCT USED FOR UNKNOWN INDICATION
     Route: 048
  13. PANTOPRAZOLE [Concomitant]
     Indication: PRODUCT USED FOR UNKNOWN INDICATION
  14. TEMESTA                            /00273201/ [Concomitant]
     Indication: PRODUCT USED FOR UNKNOWN INDICATION
     Route: 048
  15. TARDYFERON [Concomitant]
     Indication: PRODUCT USED FOR UNKNOWN INDICATION
     Route: 048
  16. MUPIDERM [Concomitant]
     Indication: PRODUCT USED FOR UNKNOWN INDICATION

REACTIONS (2)
  - Rash maculo-papular [Recovered/Resolved]
  - Blepharitis [Recovered/Resolved]
